FAERS Safety Report 10776879 (Version 2)
Quarter: 2015Q1

REPORT INFORMATION
  Report Type: Spontaneous
  Country: US (occurrence: US)
  Receive Date: 20150209
  Receipt Date: 20150309
  Transmission Date: 20150721
  Serious: No
  Sender: FDA-Public Use
  Company Number: US-PFIZER INC-2015051401

PATIENT
  Age: 51 Year
  Sex: Male
  Weight: 112 kg

DRUGS (4)
  1. WELLBUTRIN [Concomitant]
     Active Substance: BUPROPION HYDROCHLORIDE
     Dosage: 150 MG, 2X/DAY
  2. AMBIEN [Concomitant]
     Active Substance: ZOLPIDEM TARTRATE
     Dosage: 10 MG, THREE TIMES A WEEK
  3. CHANTIX [Suspect]
     Active Substance: VARENICLINE TARTRATE
     Indication: SMOKING CESSATION THERAPY
     Dosage: 1 MG, 2X/DAY
     Dates: start: 20150115
  4. HYDROCODONE [Concomitant]
     Active Substance: HYDROCODONE
     Indication: NECK PAIN
     Dosage: 325 MG, AS NEEDED

REACTIONS (9)
  - Skin irritation [Unknown]
  - Anxiety [Unknown]
  - Dry skin [Unknown]
  - Feeling abnormal [Unknown]
  - Mental disorder [Unknown]
  - Limb discomfort [Unknown]
  - Crying [Unknown]
  - Insomnia [Unknown]
  - Pruritus [Unknown]

NARRATIVE: CASE EVENT DATE: 20150129
